FAERS Safety Report 10612778 (Version 1)
Quarter: 2014Q4

REPORT INFORMATION
  Report Type: Spontaneous
  Country: IE (occurrence: IE)
  Receive Date: 20141127
  Receipt Date: 20141127
  Transmission Date: 20150529
  Serious: Yes (Hospitalization)
  Sender: FDA-Public Use
  Company Number: IE-009507513-1411IRL012129

PATIENT
  Sex: Female

DRUGS (1)
  1. TIMOTHY, STANDARDIZED [Suspect]
     Active Substance: PHLEUM PRATENSE POLLEN
     Indication: PRODUCT USED FOR UNKNOWN INDICATION
     Dosage: 75000 SQ-T, DAILY
     Route: 060

REACTIONS (2)
  - Hiatus hernia [Unknown]
  - Non-cardiac chest pain [Unknown]
